FAERS Safety Report 5799815-7 (Version None)
Quarter: 2008Q3

REPORT INFORMATION
  Report Type: 
  Country: None (occurrence: None)
  Receive Date: 20080701
  Receipt Date: 20080616
  Transmission Date: 20090109
  Serious: Yes (Other)
  Sender: FDA-Public Use
  Company Number: 2008BI015535

PATIENT
  Age: 58 Year
  Sex: Female
  Weight: 40.3701 kg

DRUGS (1)
  1. TYSABRI [Suspect]
     Indication: MULTIPLE SCLEROSIS
     Dosage: 300 MG; QM; IV
     Route: 042
     Dates: start: 20070131, end: 20080611

REACTIONS (2)
  - OVARIAN CANCER METASTATIC [None]
  - WEIGHT DECREASED [None]
